FAERS Safety Report 5351320-8 (Version None)
Quarter: 2007Q2

REPORT INFORMATION
  Report Type: 
  Country: None (occurrence: None)
  Receive Date: 20070608
  Receipt Date: 20070606
  Transmission Date: 20071010
  Serious: Yes (Other)
  Sender: FDA-Public Use
  Company Number: GB-ROXANE LABORATORIES, INC-2007-UK-01866UK

PATIENT
  Sex: Female

DRUGS (1)
  1. ORAMORPH SR [Suspect]
     Indication: PAIN

REACTIONS (3)
  - DRUG ADMINISTRATION ERROR [None]
  - EPILEPSY [None]
  - SOMNOLENCE [None]
